FAERS Safety Report 8767206 (Version 2)
Quarter: 2012Q4

REPORT INFORMATION
  Report Type: 
  Country: US (occurrence: US)
  Receive Date: 20120904
  Receipt Date: 20121022
  Transmission Date: 20130627
  Serious: Yes (Other)
  Sender: FDA-Public Use
  Company Number: US-JNJFOC-20100802332

PATIENT
  Sex: Male

DRUGS (5)
  1. LEVAQUIN [Suspect]
     Indication: RESPIRATORY TRACT INFECTION
     Route: 048
  2. LEVAQUIN [Suspect]
     Indication: RESPIRATORY TRACT INFECTION
     Route: 048
     Dates: start: 20080102
  3. LEVAQUIN [Suspect]
     Indication: BACTERIAL INFECTION
     Route: 048
  4. LEVAQUIN [Suspect]
     Indication: BACTERIAL INFECTION
     Route: 048
     Dates: start: 20080102
  5. PREDNISONE [Suspect]
     Indication: RESPIRATORY TRACT INFLAMMATION
     Route: 065
     Dates: start: 20080228

REACTIONS (4)
  - Muscle rupture [Recovering/Resolving]
  - Rotator cuff syndrome [Unknown]
  - Rotator cuff syndrome [Unknown]
  - Epicondylitis [Unknown]
